FAERS Safety Report 9243693 (Version 1)
Quarter: 2013Q1

REPORT INFORMATION
  Report Type: Spontaneous
  Country: US (occurrence: None)
  Receive Date: 20121123
  Receipt Date: 20121123
  Transmission Date: 20140127
  Serious: No
  Sender: FDA-Public Use
  Company Number: 356769

PATIENT
  Sex: Male

DRUGS (1)
  1. VICTOZA (LIRAGLUTIDE) SOLUTION FOR I NJECTION, 6 MG/ML [Suspect]
     Route: 058

REACTIONS (1)
  - Decreased appetite [None]
